FAERS Safety Report 10187380 (Version 1)
Quarter: 2014Q2

REPORT INFORMATION
  Report Type: Spontaneous
  Country: GB (occurrence: None)
  Receive Date: 20140520
  Receipt Date: 20140520
  Transmission Date: 20141212
  Serious: Yes (Other)
  Sender: FDA-Public Use
  Company Number: AUR-APL-2014-05851

PATIENT
  Age: 65 Year
  Sex: Male
  Weight: 39.85 kg

DRUGS (4)
  1. SERTRALINE (SERTRALINE) [Suspect]
     Indication: ANXIETY
     Dosage: 1 IN 1 D
     Route: 048
     Dates: start: 20140424, end: 20140507
  2. SERTRALINE (SERTRALINE) [Suspect]
     Indication: DEPRESSION
     Dosage: 1 IN 1 D
     Route: 048
     Dates: start: 20140424, end: 20140507
  3. SERTRALINE (SERTRALINE) [Suspect]
     Indication: OBSESSIVE-COMPULSIVE DISORDER
     Dosage: 1 IN 1 D
     Route: 048
     Dates: start: 20140424, end: 20140507
  4. ZOPICLONE (ZOPICLONE) [Concomitant]

REACTIONS (6)
  - Anxiety [None]
  - Insomnia [None]
  - Restlessness [None]
  - Depression [None]
  - Tremor [None]
  - Hot flush [None]
